FAERS Safety Report 6649588-0 (Version None)
Quarter: 2010Q1

REPORT INFORMATION
  Report Type: 
  Country: None (occurrence: None)
  Receive Date: 20100324
  Receipt Date: 20100324
  Transmission Date: 20100710
  Serious: Yes (Other)
  Sender: FDA-Public Use
  Company Number: None

PATIENT
  Age: 55 Year
  Sex: Male
  Weight: 86.1834 kg

DRUGS (2)
  1. SIMVASTATIN [Suspect]
     Indication: BLOOD CHOLESTEROL INCREASED
     Dosage: 80 MG. DAILY PO
     Route: 048
     Dates: start: 20070101, end: 20100322
  2. SIMVASTATIN [Suspect]
     Indication: CARDIOVASCULAR DISORDER
     Dosage: 80 MG. DAILY PO
     Route: 048
     Dates: start: 20070101, end: 20100322

REACTIONS (7)
  - DYSURIA [None]
  - EMOTIONAL DISTRESS [None]
  - INJURY [None]
  - MYALGIA [None]
  - RENAL DISORDER [None]
  - SINUSITIS [None]
  - TENDON INJURY [None]
